FAERS Safety Report 4351381-9 (Version None)
Quarter: 2004Q2

REPORT INFORMATION
  Report Type: 
  Country: None (occurrence: None)
  Receive Date: 20040430
  Receipt Date: 20040430
  Transmission Date: 20050107
  Serious: Yes (Hospitalization)
  Sender: FDA-Public Use
  Company Number: None

PATIENT
  Age: 80 Year
  Sex: Female
  Weight: 52 kg

DRUGS (8)
  1. ANCEF [Suspect]
     Indication: PROPHYLAXIS
     Dosage: 1 GM IV Q8HR
     Route: 042
     Dates: start: 20031223, end: 20031226
  2. ANCEF [Suspect]
     Indication: SURGERY
     Dosage: 1 GM IV Q8HR
     Route: 042
     Dates: start: 20031223, end: 20031226
  3. ALTACE [Concomitant]
  4. KCL TAB [Concomitant]
  5. NIFEDIPINE [Concomitant]
  6. MORPHINE [Concomitant]
  7. PROTONIX [Concomitant]
  8. .. [Concomitant]

REACTIONS (2)
  - RASH [None]
  - RASH MACULO-PAPULAR [None]
